FAERS Safety Report 4373157-9 (Version None)
Quarter: 2004Q2

REPORT INFORMATION
  Report Type: 
  Country: None (occurrence: None)
  Receive Date: 20040603
  Receipt Date: 20040514
  Transmission Date: 20050107
  Serious: Yes (Disabling, Other)
  Sender: FDA-Public Use
  Company Number: USA040566757

PATIENT
  Age: 53 Year
  Sex: Female

DRUGS (2)
  1. PROZAC [Suspect]
     Dosage: 20 MG/1 DAY
     Dates: end: 20030101
  2. FLUOXETINE HYDROCHLORIDE [Concomitant]

REACTIONS (6)
  - CARDIAC DISORDER [None]
  - DYSPNOEA [None]
  - ECHOCARDIOGRAM ABNORMAL [None]
  - LACRIMAL DISORDER [None]
  - PALPITATIONS [None]
  - SWELLING [None]
